FAERS Safety Report 5925210-3 (Version None)
Quarter: 2008Q3

REPORT INFORMATION
  Report Type: 
  Country: None (occurrence: None)
  Receive Date: 20080909
  Receipt Date: 20070914
  Transmission Date: 20090109
  Serious: No
  Sender: FDA-Public Use
  Company Number: 163-20785-07081934

PATIENT
  Age: 65 Year
  Sex: Male

DRUGS (4)
  1. THALOMID [Suspect]
     Indication: MULTIPLE MYELOMA
     Dosage: 150 MG, 3 IN 1 D, ORAL ; 100 MG, 2 IN 1 D, ORAL ; 100 MG, 2 IN 1 DAY, ORAL
     Route: 048
     Dates: start: 20050225, end: 20050701
  2. THALOMID [Suspect]
     Indication: MULTIPLE MYELOMA
     Dosage: 150 MG, 3 IN 1 D, ORAL ; 100 MG, 2 IN 1 D, ORAL ; 100 MG, 2 IN 1 DAY, ORAL
     Route: 048
     Dates: start: 20050725, end: 20050901
  3. THALOMID [Suspect]
     Indication: MULTIPLE MYELOMA
     Dosage: 150 MG, 3 IN 1 D, ORAL ; 100 MG, 2 IN 1 D, ORAL ; 100 MG, 2 IN 1 DAY, ORAL
     Route: 048
     Dates: start: 20061030, end: 20070401
  4. VELCADE [Concomitant]

REACTIONS (2)
  - DRUG INEFFECTIVE [None]
  - MULTIPLE MYELOMA [None]
